APPROVED DRUG PRODUCT: TAZORAC
Active Ingredient: TAZAROTENE
Strength: 0.05%
Dosage Form/Route: GEL;TOPICAL
Application: N020600 | Product #001 | TE Code: AB
Applicant: ALMIRALL LLC
Approved: Jun 13, 1997 | RLD: Yes | RS: Yes | Type: RX